FAERS Safety Report 8178134 (Version 9)
Quarter: 2013Q3

REPORT INFORMATION
  Report Type: Spontaneous
  Country: US (occurrence: US)
  Receive Date: 20111012
  Receipt Date: 20130718
  Transmission Date: 20140515
  Serious: Yes (Other)
  Sender: FDA-Public Use
  Company Number: US-ROCHE-1001889

PATIENT
  Age: 19 Year
  Sex: Male
  Weight: 61.29 kg

DRUGS (2)
  1. ACCUTANE [Suspect]
     Indication: ACNE
     Route: 065
     Dates: start: 1996, end: 19960301
  2. RETIN A CREAM [Concomitant]
     Indication: ACNE

REACTIONS (7)
  - Colitis ulcerative [Unknown]
  - Anxiety [Unknown]
  - Inflammatory bowel disease [Unknown]
  - Depression [Unknown]
  - Chapped lips [Unknown]
  - Back pain [Unknown]
  - Dry skin [Unknown]
